FAERS Safety Report 4459689-3 (Version None)
Quarter: 2004Q3

REPORT INFORMATION
  Report Type: 
  Country: None (occurrence: None)
  Receive Date: 20040923
  Receipt Date: 20040910
  Transmission Date: 20050211
  Serious: Yes (Hospitalization)
  Sender: FDA-Public Use
  Company Number: 2004S1000148

PATIENT
  Age: 70 Year
  Sex: Female
  Weight: 72.7 kg

DRUGS (3)
  1. CUBICIN [Suspect]
     Indication: SKIN ULCER
     Dosage: 4 00 MG; Q48H; IV
     Route: 042
     Dates: start: 20040609, end: 20040723
  2. CUBICIN [Suspect]
     Indication: STAPHYLOCOCCAL INFECTION
     Dosage: 4 00 MG; Q48H; IV
     Route: 042
     Dates: start: 20040609, end: 20040723
  3. INVANZ [Suspect]
     Indication: ENTEROBACTER INFECTION
     Dosage: 1 GM; Q24H; IV
     Route: 042
     Dates: start: 20040609, end: 20040718

REACTIONS (2)
  - GRAND MAL CONVULSION [None]
  - VISUAL DISTURBANCE [None]
